FAERS Safety Report 9606335 (Version 1)
Quarter: 2013Q4

REPORT INFORMATION
  Report Type: Spontaneous
  Country: US (occurrence: US)
  Receive Date: 20131008
  Receipt Date: 20131008
  Transmission Date: 20140711
  Serious: No
  Sender: FDA-Public Use
  Company Number: US-AMGEN-USASP2013050796

PATIENT
  Age: 83 Year
  Sex: Female

DRUGS (4)
  1. PROLIA [Suspect]
     Indication: OSTEOPOROSIS
     Dosage: UNK
     Dates: start: 201304
  2. LISINOPRIL [Concomitant]
  3. CRESTOR [Concomitant]
  4. PROTONIX [Concomitant]

REACTIONS (2)
  - Fungal infection [Recovering/Resolving]
  - Rash [Unknown]
